FAERS Safety Report 6418558-X (Version None)
Quarter: 2009Q4

REPORT INFORMATION
  Report Type: 
  Country: None (occurrence: None)
  Receive Date: 20091028
  Receipt Date: 20091026
  Transmission Date: 20100525
  Serious: Yes (Hospitalization)
  Sender: FDA-Public Use
  Company Number: CA-SANOFI-SYNTHELABO-F01200901034

PATIENT
  Sex: Male

DRUGS (4)
  1. BEVACIZUMAB [Suspect]
     Route: 042
  2. RADIATION THERAPY [Suspect]
     Indication: RECTAL CANCER
     Dosage: UNK
     Dates: start: 20090323
  3. CAPECITABINE [Suspect]
     Route: 048
  4. OXALIPLATIN [Suspect]
     Indication: RECTAL CANCER
     Route: 041

REACTIONS (7)
  - GASTROENTERITIS RADIATION [None]
  - IMPAIRED HEALING [None]
  - INTESTINAL STENOSIS [None]
  - PNEUMONIA [None]
  - POSTOPERATIVE ADHESION [None]
  - POSTOPERATIVE ILEUS [None]
  - SMALL INTESTINAL OBSTRUCTION [None]
